FAERS Safety Report 12680256 (Version 1)
Quarter: 2016Q3

REPORT INFORMATION
  Report Type: Spontaneous
  Country: US (occurrence: US)
  Receive Date: 20160824
  Receipt Date: 20160824
  Transmission Date: 20161109
  Serious: No
  Sender: FDA-Public Use
  Company Number: US-GLAXOSMITHKLINE-US2016115687

PATIENT
  Sex: Male

DRUGS (7)
  1. PREDNISONE. [Concomitant]
     Active Substance: PREDNISONE
  2. LISINOPRIL. [Concomitant]
     Active Substance: LISINOPRIL
  3. HYDROXYCHLOROQUINE [Concomitant]
     Active Substance: HYDROXYCHLOROQUINE
  4. NAPROXEN. [Concomitant]
     Active Substance: NAPROXEN
  5. BENLYSTA [Suspect]
     Active Substance: BELIMUMAB
     Indication: SYSTEMIC LUPUS ERYTHEMATOSUS
     Dosage: UNK
     Dates: start: 2015
  6. AZATHIOPRINE. [Concomitant]
     Active Substance: AZATHIOPRINE
  7. TESTOSTERONE. [Concomitant]
     Active Substance: TESTOSTERONE
     Route: 042

REACTIONS (3)
  - Urticaria [Recovered/Resolved]
  - Drug effect decreased [Unknown]
  - Incorrect drug administration rate [Unknown]
